FAERS Safety Report 7791587-X (Version None)
Quarter: 2011Q4

REPORT INFORMATION
  Report Type: 
  Country: None (occurrence: None)
  Receive Date: 20111003
  Receipt Date: 20110923
  Transmission Date: 20120403
  Serious: Yes (Hospitalization)
  Sender: FDA-Public Use
  Company Number: FR-ABBOTT-11P-056-0858693-00

PATIENT
  Age: 47 Year
  Sex: Female

DRUGS (3)
  1. HUMIRA [Suspect]
     Indication: ANKYLOSING SPONDYLITIS
     Route: 058
     Dates: end: 20110920
  2. MORPHINE SULFATE [Suspect]
     Indication: PAIN
  3. MORPHINE SULFATE [Suspect]
     Indication: ANKYLOSING SPONDYLITIS

REACTIONS (8)
  - CEREBROVASCULAR ACCIDENT [None]
  - DYSARTHRIA [None]
  - ROAD TRAFFIC ACCIDENT [None]
  - DEPRESSED LEVEL OF CONSCIOUSNESS [None]
  - FEELING ABNORMAL [None]
  - DRUG SCREEN POSITIVE [None]
  - DRUG DEPENDENCE [None]
  - DISTURBANCE IN ATTENTION [None]
